FAERS Safety Report 4359645-X (Version None)
Quarter: 2004Q2

REPORT INFORMATION
  Report Type: 
  Country: None (occurrence: None)
  Receive Date: 20040517
  Receipt Date: 20040517
  Transmission Date: 20050107
  Serious: Yes (Hospitalization)
  Sender: FDA-Public Use
  Company Number: None

PATIENT
  Age: 72 Year
  Sex: Male

DRUGS (3)
  1. INDOMETHACIN [Suspect]
     Indication: GOUT
     Dosage: PRN ORAL
     Route: 048
     Dates: start: 19900101, end: 20040503
  2. WARFARIN SODIUM [Suspect]
     Indication: ATRIAL FIBRILLATION
     Dosage: 7.5 MG DAILY ORAL
     Route: 048
     Dates: start: 19940101, end: 20040503
  3. WARFARIN SODIUM [Suspect]
     Indication: MEDICAL DEVICE IMPLANTATION
     Dosage: 7.5 MG DAILY ORAL
     Route: 048
     Dates: start: 19940101, end: 20040503

REACTIONS (1)
  - GASTROINTESTINAL HAEMORRHAGE [None]
